FAERS Safety Report 21660289 (Version 2)
Quarter: 2022Q4

REPORT INFORMATION
  Report Type: Report from Study
  Country: BR (occurrence: BR)
  Receive Date: 20221130
  Receipt Date: 20221202
  Transmission Date: 20230113
  Serious: Yes (Hospitalization, Other)
  Sender: FDA-Public Use
  Company Number: BR-ABBVIE-4216355

PATIENT
  Age: 61 Year
  Sex: Female
  Weight: 67 kg

DRUGS (4)
  1. RINVOQ [Suspect]
     Active Substance: UPADACITINIB
     Indication: Rheumatoid arthritis
     Dosage: 15 MILLIGRAM
     Route: 048
     Dates: start: 20210525
  2. PURAN [Concomitant]
     Active Substance: LEVOTHYROXINE SODIUM
     Indication: Product used for unknown indication
     Dosage: 62.5 MILLIGRAM
  3. FOLIC ACID DC [Concomitant]
     Indication: Product used for unknown indication
  4. OSCAL [Concomitant]
     Active Substance: CALCIUM CARBONATE
     Indication: Product used for unknown indication

REACTIONS (7)
  - Arthritis [Recovered/Resolved]
  - Pain in extremity [Recovered/Resolved]
  - Pain [Unknown]
  - Pain [Recovering/Resolving]
  - Spinal pain [Recovered/Resolved]
  - Spinal disorder [Recovering/Resolving]
  - Dyspnoea [Recovered/Resolved]

NARRATIVE: CASE EVENT DATE: 20221101
